FAERS Safety Report 5336360-7 (Version None)
Quarter: 2007Q2

REPORT INFORMATION
  Report Type: 
  Country: None (occurrence: None)
  Receive Date: 20070523
  Receipt Date: 20070510
  Transmission Date: 20071010
  Serious: Yes (Hospitalization)
  Sender: FDA-Public Use
  Company Number: 8023994

PATIENT
  Sex: Female

DRUGS (3)
  1. KEPPRA [Suspect]
  2. CCNU [Concomitant]
  3. NATULAN [Concomitant]

REACTIONS (1)
  - PANCYTOPENIA [None]
